FAERS Safety Report 4903587-5 (Version None)
Quarter: 2006Q1

REPORT INFORMATION
  Report Type: 
  Country: None (occurrence: None)
  Receive Date: 20060203
  Receipt Date: 20060131
  Transmission Date: 20060701
  Serious: Yes (Hospitalization)
  Sender: FDA-Public Use
  Company Number: 2006014201

PATIENT
  Age: 78 Year
  Sex: Male

DRUGS (10)
  1. ZOLOFT [Suspect]
     Indication: ILL-DEFINED DISORDER
     Dosage: 25 MG (1 IN 1 D), ORAL
     Route: 048
  2. SINTROM [Suspect]
     Indication: ILL-DEFINED DISORDER
     Dosage: ORAL
     Route: 048
     Dates: end: 20051210
  3. ASPIRIN [Suspect]
     Indication: ILL-DEFINED DISORDER
     Dosage: 100 MG (1 IN 1 D), ORAL
     Route: 048
     Dates: end: 20051210
  4. TOREM (TORASEMIDE) [Concomitant]
  5. COSAAR (LOSARTAN POTASSIUM) [Concomitant]
  6. CARVEDILOL [Concomitant]
  7. ALLOPURINOL [Concomitant]
  8. OMEGA-3 (OMEGA-3 TRIGLYCERIDES) [Concomitant]
  9. BECOZYM (VITAMIN B NOS) [Concomitant]
  10. ZOCOR [Concomitant]

REACTIONS (7)
  - ANAEMIA [None]
  - FAECES DISCOLOURED [None]
  - GASTRIC POLYPS [None]
  - GASTRITIS EROSIVE [None]
  - GENERAL PHYSICAL CONDITION ABNORMAL [None]
  - INTERNATIONAL NORMALISED RATIO INCREASED [None]
  - MELAENA [None]
